FAERS Safety Report 5153227-8 (Version None)
Quarter: 2006Q4

REPORT INFORMATION
  Report Type: 
  Country: None (occurrence: None)
  Receive Date: 20061117
  Receipt Date: 20061108
  Transmission Date: 20070319
  Serious: Yes (Hospitalization)
  Sender: FDA-Public Use
  Company Number: 2006PK02336

PATIENT
  Age: 44 Year
  Sex: Female

DRUGS (19)
  1. SEROQUEL [Suspect]
     Route: 048
     Dates: start: 20050613, end: 20050712
  2. SEROQUEL [Suspect]
     Route: 048
     Dates: start: 20050713, end: 20050905
  3. SEROQUEL [Suspect]
     Route: 048
     Dates: start: 20050906, end: 20051028
  4. SEROQUEL [Suspect]
     Route: 048
     Dates: start: 20051029, end: 20060116
  5. SEROQUEL [Suspect]
     Route: 048
     Dates: start: 20060117, end: 20060329
  6. SEROQUEL [Suspect]
     Route: 048
     Dates: start: 20060330
  7. SEROQUEL [Suspect]
     Route: 048
     Dates: end: 20060811
  8. SEROQUEL [Suspect]
     Route: 048
     Dates: start: 20060812, end: 20060814
  9. SEROQUEL [Suspect]
     Route: 048
     Dates: start: 20060815, end: 20060815
  10. SEROQUEL [Suspect]
     Route: 048
     Dates: start: 20060816, end: 20060825
  11. SEROQUEL [Suspect]
     Route: 048
     Dates: start: 20060826, end: 20060912
  12. SEROQUEL [Suspect]
     Route: 048
     Dates: start: 20060913
  13. MIRTAZAPINE [Suspect]
     Route: 048
     Dates: start: 20060818
  14. VALPROATE SODIUM [Suspect]
     Dosage: 300 MG TO 600 MG
     Route: 048
     Dates: start: 20060823, end: 20060826
  15. VALPROATE SODIUM [Suspect]
     Dosage: 300 MG TO 600 MG
     Route: 048
     Dates: start: 20060827, end: 20060904
  16. VALPROATE SODIUM [Suspect]
     Dosage: 300 MG TO 600 MG
     Route: 048
     Dates: start: 20060905, end: 20060906
  17. DIAZEPAM [Concomitant]
     Route: 048
     Dates: start: 20060813, end: 20060813
  18. DIAZEPAM [Concomitant]
     Route: 048
     Dates: start: 20060814, end: 20060829
  19. DIAZEPAM [Concomitant]
     Dosage: 12.5 MG TO 2 MG
     Route: 048
     Dates: start: 20060830, end: 20060922

REACTIONS (1)
  - NEUTROPENIA [None]
